FAERS Safety Report 17527499 (Version 1)
Quarter: 2020Q1

REPORT INFORMATION
  Report Type: Spontaneous
  Country: GB (occurrence: GB)
  Receive Date: 20200311
  Receipt Date: 20200311
  Transmission Date: 20200409
  Serious: Yes (Other)
  Sender: FDA-Public Use
  Company Number: GB-JNJFOC-20200243894

PATIENT
  Age: 63 Year
  Sex: Female
  Weight: 74 kg

DRUGS (10)
  1. ZOMORPH [Concomitant]
     Active Substance: MORPHINE SULFATE
     Indication: BACK PAIN
     Dosage: AT NIGHT.
     Dates: start: 20180911
  2. TOPAMAX [Suspect]
     Active Substance: TOPIRAMATE
     Indication: PRODUCT USED FOR UNKNOWN INDICATION
     Route: 065
     Dates: start: 20191119
  3. PROPRANOLOL [Concomitant]
     Active Substance: PROPRANOLOL HYDROCHLORIDE
     Indication: ANXIETY
     Dosage: DAILY.; AS REQUIRED
     Dates: start: 20160725
  4. PANTOPRAZOLE [Concomitant]
     Active Substance: PANTOPRAZOLE
     Indication: NAUSEA
     Dates: start: 20190909
  5. REFRESH CELLUVISC [Concomitant]
     Active Substance: CARBOXYMETHYLCELLULOSE SODIUM
     Dosage: AS DIRECTED.
     Dates: start: 20130228
  6. TIBOLONE [Concomitant]
     Active Substance: TIBOLONE
     Dates: start: 20130228
  7. BACLOFEN. [Concomitant]
     Active Substance: BACLOFEN
     Indication: MUSCLE SPASMS
     Dosage: THREE TIMES PER DAY.; AS REQUIRED
     Dates: start: 20191119, end: 20191217
  8. OLOPATADINE. [Concomitant]
     Active Substance: OLOPATADINE
     Dates: start: 20130228
  9. IBUPROFEN. [Concomitant]
     Active Substance: IBUPROFEN
     Dosage: APPLY THREE TIMES PER DAY TO AFFECTED AREA.; AS REQUIRED
     Route: 065
     Dates: start: 20191113, end: 20191123
  10. DIAZEPAM. [Concomitant]
     Active Substance: DIAZEPAM
     Indication: MUSCLE SPASMS
     Dosage: ; AS REQUIRED
     Dates: start: 20130711

REACTIONS (2)
  - Visual impairment [Unknown]
  - Migraine [Recovered/Resolved]

NARRATIVE: CASE EVENT DATE: 20191119
